FAERS Safety Report 24329212 (Version 1)
Quarter: 2024Q3

REPORT INFORMATION
  Report Type: Spontaneous
  Country: CN (occurrence: CN)
  Receive Date: 20240917
  Receipt Date: 20240917
  Transmission Date: 20241016
  Serious: Yes (Life-Threatening, Hospitalization)
  Sender: PFIZER
  Company Number: CN-PFIZER INC-PV202400120917

PATIENT
  Age: 73 Year
  Sex: Female

DRUGS (4)
  1. CYTARABINE [Suspect]
     Active Substance: CYTARABINE
     Indication: Myelodysplastic syndrome
     Dosage: 0.015 G, EVERY 12H
     Route: 058
     Dates: start: 20240817, end: 20240830
  2. AZACITIDINE [Suspect]
     Active Substance: AZACITIDINE
     Indication: Myelodysplastic syndrome
     Dosage: 100 MG, 1X/DAY
     Route: 058
     Dates: start: 20240817, end: 20240823
  3. STERILE WATER [Concomitant]
     Active Substance: WATER
     Indication: Vehicle solution use
     Dosage: 4 ML, 1X/DAY
     Route: 058
     Dates: start: 20240817, end: 20240823
  4. SODIUM CHLORIDE [Concomitant]
     Active Substance: SODIUM CHLORIDE
     Indication: Vehicle solution use
     Dosage: 1 ML, EVERY 12H
     Route: 058
     Dates: start: 20240817, end: 20240830

REACTIONS (4)
  - Full blood count decreased [Recovering/Resolving]
  - Haemorrhage subcutaneous [Recovered/Resolved]
  - Gingival bleeding [Recovered/Resolved]
  - Off label use [Unknown]

NARRATIVE: CASE EVENT DATE: 20240101
